FAERS Safety Report 6123023-3 (Version None)
Quarter: 2009Q1

REPORT INFORMATION
  Report Type: 
  Country: None (occurrence: None)
  Receive Date: 20090318
  Receipt Date: 20090313
  Transmission Date: 20090719
  Serious: Yes (Death, Other)
  Sender: FDA-Public Use
  Company Number: US-ELI_LILLY_AND_COMPANY-US200903001224

PATIENT
  Sex: Male
  Weight: 107.48 kg

DRUGS (10)
  1. ALIMTA [Suspect]
     Indication: NON-SMALL CELL LUNG CANCER METASTATIC
     Dosage: 1125 MG, UNK
     Route: 042
     Dates: start: 20081224, end: 20081224
  2. NAVELBINE [Concomitant]
     Indication: NON-SMALL CELL LUNG CANCER METASTATIC
     Dates: end: 20081224
  3. VITAMIN B-12 [Concomitant]
  4. FOLIC ACID [Concomitant]
  5. CORTICOSTEROID NOS [Concomitant]
  6. ZOMETA [Concomitant]
     Dates: end: 20081224
  7. NEULASTA [Concomitant]
  8. POTASSIUM CHLORIDE [Concomitant]
  9. LASIX [Concomitant]
  10. PERCOCET [Concomitant]

REACTIONS (10)
  - ANAEMIA [None]
  - BLOOD GLUCOSE INCREASED [None]
  - CARDIOMEGALY [None]
  - DIASTOLIC DYSFUNCTION [None]
  - GENERALISED OEDEMA [None]
  - HEPATIC FAILURE [None]
  - LEFT VENTRICULAR HYPERTROPHY [None]
  - PULMONARY HYPERTENSION [None]
  - RENAL FAILURE [None]
  - TRICUSPID VALVE INCOMPETENCE [None]
